FAERS Safety Report 9934822 (Version 1)
Quarter: 2014Q1

REPORT INFORMATION
  Report Type: Report from Study
  Country: RU (occurrence: RU)
  Receive Date: 20140228
  Receipt Date: 20140228
  Transmission Date: 20141002
  Serious: Yes (Hospitalization, Disabling)
  Sender: FDA-Public Use
  Company Number: RU-GLAXOSMITHKLINE-B0972842A

PATIENT
  Age: 76 Year
  Sex: Male

DRUGS (7)
  1. OMACOR [Suspect]
     Indication: MYOCARDIAL INFARCTION
     Dosage: 1000MG PER DAY
     Route: 048
     Dates: start: 20130729
  2. NITROGLYCERIN [Concomitant]
     Route: 042
  3. CLEXANE [Concomitant]
     Route: 058
  4. COPLAVIX [Concomitant]
     Route: 048
  5. OMEPRAZOLE [Concomitant]
     Route: 048
  6. ENALAPRIL [Concomitant]
     Route: 048
  7. CONCOR [Concomitant]
     Route: 048

REACTIONS (1)
  - Coronary artery disease [Recovered/Resolved with Sequelae]
